FAERS Safety Report 13557698 (Version 2)
Quarter: 2017Q2

REPORT INFORMATION
  Report Type: Spontaneous
  Country: JP (occurrence: JP)
  Receive Date: 20170518
  Receipt Date: 20170606
  Transmission Date: 20170830
  Serious: Yes (Other)
  Sender: FDA-Public Use
  Company Number: JP-PFIZER INC-2017210606

PATIENT
  Age: 4 Decade
  Sex: Male
  Weight: 78 kg

DRUGS (1)
  1. ZITHROMAC 250MG [Suspect]
     Active Substance: AZITHROMYCIN DIHYDRATE
     Indication: VIRAL UPPER RESPIRATORY TRACT INFECTION
     Dosage: 500 MG
     Route: 048
     Dates: start: 20170508, end: 20170508

REACTIONS (4)
  - Syncope [Recovered/Resolved]
  - Altered state of consciousness [Recovered/Resolved]
  - Fall [Recovered/Resolved]
  - Abdominal pain [Recovered/Resolved]

NARRATIVE: CASE EVENT DATE: 20170509
